FAERS Safety Report 24593079 (Version 1)
Quarter: 2024Q4

REPORT INFORMATION
  Report Type: Report from Study
  Country: US (occurrence: US)
  Receive Date: 20241108
  Receipt Date: 20241108
  Transmission Date: 20250115
  Serious: Yes (Other)
  Sender: TAKEDA
  Company Number: US-TAKEDA-2024TUS108910

PATIENT
  Age: 46 Year
  Sex: Female

DRUGS (19)
  1. MARIBAVIR [Suspect]
     Active Substance: MARIBAVIR
     Indication: Product used for unknown indication
     Dosage: UNK
     Route: 065
  2. ACETAMINOPHEN [Concomitant]
     Active Substance: ACETAMINOPHEN
     Dosage: UNK UNK, TID
     Route: 048
  3. ACETAMINOPHEN [Concomitant]
     Active Substance: ACETAMINOPHEN
     Dosage: UNK UNK, Q6HR
     Route: 065
  4. AMLODIPINE [Concomitant]
     Active Substance: AMLODIPINE BESYLATE
     Dosage: 10 MILLIGRAM, QD
     Route: 048
  5. ASPIRIN [Concomitant]
     Active Substance: ASPIRIN
     Dosage: 81 MILLIGRAM, QD
     Route: 048
  6. CALCIUM ACETATE [Concomitant]
     Active Substance: CALCIUM ACETATE
     Dosage: 1334 MILLIGRAM, TID
     Route: 048
  7. CARVEDILOL [Concomitant]
     Active Substance: CARVEDILOL
     Dosage: 25 MILLIGRAM, BID
     Route: 048
  8. CHOLECALCIFEROL [Concomitant]
     Active Substance: CHOLECALCIFEROL
     Dosage: UNK UNK, QD
     Route: 048
  9. CLONIDINE [Concomitant]
     Active Substance: CLONIDINE
     Indication: Blood pressure increased
     Dosage: 0.2 MILLIGRAM, QD
     Route: 048
  10. LACTOBACILLUS RHAMNOSUS [Concomitant]
     Active Substance: LACTOBACILLUS RHAMNOSUS
     Dosage: UNK UNK, BID
     Route: 048
  11. MELATONIN [Concomitant]
     Active Substance: MELATONIN
     Dosage: 5 MILLIGRAM, QD
     Route: 048
  12. MYCOPHENOLATE MOFETIL [Concomitant]
     Active Substance: MYCOPHENOLATE MOFETIL
     Indication: Immunosuppression
     Dosage: 180 MILLIGRAM, BID
     Route: 048
  13. PREDNISONE [Concomitant]
     Active Substance: PREDNISONE
     Dosage: 10 MILLIGRAM, QD
     Route: 048
  14. SODIUM BICARBONATE [Concomitant]
     Active Substance: SODIUM BICARBONATE
     Dosage: 1300 MILLIGRAM, TID
     Route: 048
  15. TACROLIMUS [Concomitant]
     Active Substance: TACROLIMUS
     Dosage: 6 MILLIGRAM, QD
     Route: 065
  16. TACROLIMUS [Concomitant]
     Active Substance: TACROLIMUS
     Dosage: 7 MILLIGRAM, QD
     Route: 065
  17. TACROLIMUS [Concomitant]
     Active Substance: TACROLIMUS
     Dosage: 5 MILLIGRAM, QD
     Route: 048
  18. TACROLIMUS [Concomitant]
     Active Substance: TACROLIMUS
     Dosage: 7 MILLIGRAM, QD
     Route: 048
  19. VALGANCICLOVIR [Concomitant]
     Active Substance: VALGANCICLOVIR
     Dosage: 450 MILLIGRAM, QOD
     Route: 048

REACTIONS (20)
  - Cytomegalovirus colitis [Unknown]
  - Pancytopenia [Unknown]
  - Pneumonia [Unknown]
  - Cytomegalovirus viraemia [Unknown]
  - Face oedema [Unknown]
  - Arthralgia [Unknown]
  - Malaise [Unknown]
  - Myalgia [Unknown]
  - Thirst [Unknown]
  - Breath sounds abnormal [Unknown]
  - Abdominal distension [Unknown]
  - Thirst [Unknown]
  - Blood pressure abnormal [Unknown]
  - Hyponatraemia [Unknown]
  - Blood bicarbonate decreased [Unknown]
  - Blood creatinine increased [Unknown]
  - Pyrexia [Unknown]
  - Fatigue [Unknown]
  - Diarrhoea [Unknown]
  - Nausea [Unknown]

NARRATIVE: CASE EVENT DATE: 20241011
